FAERS Safety Report 11090258 (Version 2)
Quarter: 2015Q2

REPORT INFORMATION
  Report Type: Spontaneous
  Country: FR (occurrence: FR)
  Receive Date: 20150505
  Receipt Date: 20150518
  Transmission Date: 20150821
  Serious: Yes (Hospitalization)
  Sender: FDA-Public Use
  Company Number: FR-PFIZER INC-2015148532

PATIENT
  Age: 68 Year
  Sex: Male

DRUGS (5)
  1. ZYVOXID [Suspect]
     Active Substance: LINEZOLID
     Indication: NOCARDIOSIS
     Dosage: UNK
     Dates: start: 201407, end: 201408
  2. PRAVASTATIN [Suspect]
     Active Substance: PRAVASTATIN\PRAVASTATIN SODIUM
     Indication: HYPERCHOLESTEROLAEMIA
     Dosage: 20 MG, DAILY
     Route: 048
     Dates: end: 20150219
  3. ZYVOXID [Suspect]
     Active Substance: LINEZOLID
     Indication: NOCARDIOSIS
     Dosage: 600 MG, DAILY
     Route: 048
     Dates: start: 201410, end: 20150219
  4. OFLOXACIN MYLAN [Suspect]
     Active Substance: OFLOXACIN
     Indication: NOCARDIOSIS
     Dosage: 200 MG, 2X/DAY
     Dates: start: 201409, end: 20150220
  5. ZECLAR [Suspect]
     Active Substance: CLARITHROMYCIN
     Indication: NOCARDIOSIS
     Dosage: 500 MG, 2X/DAY
     Route: 048
     Dates: start: 201409, end: 20150220

REACTIONS (2)
  - Transaminases increased [Recovered/Resolved]
  - Rhabdomyolysis [Recovered/Resolved]

NARRATIVE: CASE EVENT DATE: 20150219
